FAERS Safety Report 13845402 (Version 1)
Quarter: 2017Q3

REPORT INFORMATION
  Report Type: Spontaneous
  Country: AU (occurrence: AU)
  Receive Date: 20170808
  Receipt Date: 20170808
  Transmission Date: 20171127
  Serious: Yes (Death)
  Sender: FDA-Public Use
  Company Number: AU-PFIZER INC-3253313

PATIENT
  Age: 45 Year
  Sex: Female

DRUGS (2)
  1. PIPERACILLIN/TAZOBACTAM [Suspect]
     Active Substance: PIPERACILLIN SODIUM\TAZOBACTAM SODIUM
     Indication: PNEUMONIA
     Dosage: 4.5 G, 2X/DAY
  2. ICODEXTRIN [Concomitant]
     Active Substance: ICODEXTRIN
     Indication: PERITONEAL DIALYSIS
     Dosage: UNK, 2X/DAY

REACTIONS (1)
  - Toxic encephalopathy [Fatal]
